FAERS Safety Report 20090023 (Version 1)
Quarter: 2021Q4

REPORT INFORMATION
  Report Type: Spontaneous
  Country: IT (occurrence: IT)
  Receive Date: 20211119
  Receipt Date: 20211119
  Transmission Date: 20220303
  Serious: Yes (Death)
  Sender: FDA-Public Use
  Company Number: IT-ABBVIE-21K-083-4167890-00

PATIENT
  Age: 16 Year
  Sex: Male
  Weight: 44 kg

DRUGS (3)
  1. VALPROIC ACID [Suspect]
     Active Substance: VALPROIC ACID
     Indication: Generalised tonic-clonic seizure
     Route: 048
     Dates: end: 20170627
  2. GARDASIL [Suspect]
     Active Substance: HUMAN PAPILLOMAVIRUS QUADRIVALENT (TYPES 6, 11, 16, AND 18) VACCINE, RECOMBINANT
     Indication: Papilloma
     Dosage: TOTAL
     Route: 030
     Dates: start: 20131125, end: 20140526
  3. GARDASIL [Suspect]
     Active Substance: HUMAN PAPILLOMAVIRUS QUADRIVALENT (TYPES 6, 11, 16, AND 18) VACCINE, RECOMBINANT
     Route: 030
     Dates: start: 20140526, end: 20140526

REACTIONS (2)
  - Pain in extremity [Fatal]
  - Drug interaction [Unknown]

NARRATIVE: CASE EVENT DATE: 20170608
